FAERS Safety Report 6129344-2 (Version None)
Quarter: 2009Q1

REPORT INFORMATION
  Report Type: 
  Country: None (occurrence: None)
  Receive Date: 20090323
  Receipt Date: 20090323
  Transmission Date: 20090719
  Serious: Yes (Hospitalization)
  Sender: FDA-Public Use
  Company Number: None

PATIENT
  Age: 64 Year
  Sex: Male
  Weight: 88.905 kg

DRUGS (1)
  1. SIMVASTATIN [Suspect]
     Indication: HIGH DENSITY LIPOPROTEIN DECREASED
     Dosage: 20 MG. 1/DAY PO
     Route: 048
     Dates: start: 20081001, end: 20090316

REACTIONS (1)
  - GLOBAL AMNESIA [None]
